FAERS Safety Report 7792389-0 (Version None)
Quarter: 2011Q4

REPORT INFORMATION
  Report Type: 
  Country: None (occurrence: None)
  Receive Date: 20111003
  Receipt Date: 20110929
  Transmission Date: 20120403
  Serious: Yes (Hospitalization)
  Sender: FDA-Public Use
  Company Number: PHEH2010US02781

PATIENT
  Sex: Female
  Weight: 45.351 kg

DRUGS (7)
  1. NIFEDIPINE [Concomitant]
     Dosage: 10 MG
     Route: 048
  2. PEN-VEE K [Concomitant]
     Dosage: 250 MG, BID
     Route: 048
  3. EXJADE [Suspect]
     Indication: SICKLE CELL ANAEMIA
     Dosage: 750 MG DAILY
     Route: 048
     Dates: start: 20080225
  4. CLONIDINE [Concomitant]
     Dosage: 0.1 MG, Q6H
  5. CLONIDINE [Concomitant]
     Dosage: 0.1 MG, Q12H
  6. EXJADE [Suspect]
     Indication: IRON OVERLOAD
     Dosage: 750 MG, QD
     Route: 048
     Dates: start: 20080130
  7. KEPPRA [Concomitant]
     Dosage: 1200 MG, BID
     Route: 048

REACTIONS (2)
  - SICKLE CELL ANAEMIA WITH CRISIS [None]
  - RENAL FAILURE [None]
